FAERS Safety Report 18849714 (Version 1)
Quarter: 2021Q1

REPORT INFORMATION
  Report Type: Spontaneous
  Country: CA (occurrence: CA)
  Receive Date: 20210204
  Receipt Date: 20210204
  Transmission Date: 20210420
  Serious: Yes (Other)
  Sender: FDA-Public Use
  Company Number: CA-PFIZER INC-2021090396

PATIENT
  Age: 51 Year
  Sex: Male
  Weight: 82 kg

DRUGS (6)
  1. METHOTREXATE SODIUM. [Suspect]
     Active Substance: METHOTREXATE SODIUM
     Indication: PSORIATIC ARTHROPATHY
     Dosage: 1 DF, UNK DOSE
  2. LEFLUNOMIDE. [Concomitant]
     Active Substance: LEFLUNOMIDE
     Dosage: 1 DF, UNK DOSE
  3. CELEBREX [Concomitant]
     Active Substance: CELECOXIB
     Dosage: 150 MG, AS NEEDED (150MG PRN)
     Route: 065
  4. ARAVA [Concomitant]
     Active Substance: LEFLUNOMIDE
     Dosage: UNK
  5. METHOTREXATE SODIUM. [Suspect]
     Active Substance: METHOTREXATE SODIUM
     Dosage: 25 MG
     Route: 065
     Dates: start: 20160818, end: 20180821
  6. SIMPONI [Concomitant]
     Active Substance: GOLIMUMAB
     Dosage: 1 DF, MONTHLY (UNK DOSE)
     Route: 065
     Dates: start: 202009

REACTIONS (5)
  - Loss of personal independence in daily activities [Unknown]
  - Hepatitis [Unknown]
  - Pain [Unknown]
  - Liver injury [Unknown]
  - Drug intolerance [Unknown]
